FAERS Safety Report 7950171-5 (Version None)
Quarter: 2011Q4

REPORT INFORMATION
  Report Type: 
  Country: None (occurrence: None)
  Receive Date: 20111130
  Receipt Date: 20061211
  Transmission Date: 20120403
  Serious: Yes (Other)
  Sender: FDA-Public Use
  Company Number: PHHY2006KR04273

PATIENT
  Sex: Male

DRUGS (1)
  1. GLEEVEC [Suspect]

REACTIONS (6)
  - PULMONARY TUBERCULOSIS [None]
  - PNEUMONIA [None]
  - FATIGUE [None]
  - OEDEMA PERIPHERAL [None]
  - DECREASED APPETITE [None]
  - FACE OEDEMA [None]
